FAERS Safety Report 18392965 (Version 1)
Quarter: 2020Q4

REPORT INFORMATION
  Report Type: Spontaneous
  Country: FR (occurrence: FR)
  Receive Date: 20201016
  Receipt Date: 20201016
  Transmission Date: 20210114
  Serious: Yes (Hospitalization)
  Sender: FDA-Public Use
  Company Number: FR-009507513-2010FRA002972

PATIENT
  Age: 51 Year
  Sex: Male
  Weight: 107 kg

DRUGS (3)
  1. MEDIATOR [Suspect]
     Active Substance: BENFLUOREX
     Indication: TYPE 2 DIABETES MELLITUS
     Dosage: 300 MILLIGRAM, QD
     Route: 048
     Dates: start: 2005, end: 200912
  2. CELECTOL [Suspect]
     Active Substance: CELIPROLOL HYDROCHLORIDE
     Dosage: UNK
     Route: 048
  3. COZAAR [Suspect]
     Active Substance: LOSARTAN POTASSIUM
     Dosage: UNK, REPORTED FORMULATION: TABLET FILM-COATED SCORABLE
     Route: 048

REACTIONS (2)
  - Aortic valve replacement [Recovered/Resolved with Sequelae]
  - Aortic valve incompetence [Recovered/Resolved with Sequelae]

NARRATIVE: CASE EVENT DATE: 200907
